FAERS Safety Report 16681298 (Version 4)
Quarter: 2019Q3

REPORT INFORMATION
  Report Type: Report from Study
  Country: IT (occurrence: IT)
  Receive Date: 20190808
  Receipt Date: 20190930
  Transmission Date: 20191004
  Serious: Yes (Other)
  Sender: FDA-Public Use
  Company Number: IT-ROCHE-2366949

PATIENT
  Age: 49 Year
  Sex: Female
  Weight: 46 kg

DRUGS (7)
  1. CYCLOPHOSPHAMIDE. [Concomitant]
     Active Substance: CYCLOPHOSPHAMIDE
     Dosage: DATE OF LAST DOSE PRIOR TO SAE ONSET: 05/JUL/2019
     Route: 042
     Dates: start: 20190614
  2. DOXORUBICIN [Concomitant]
     Active Substance: DOXORUBICIN
     Dosage: DATE OF LAST DOSE PRIOR TO SAE ONSET: 05/JUL/2019
     Route: 042
     Dates: start: 20190614
  3. CARBOPLATIN. [Concomitant]
     Active Substance: CARBOPLATIN
     Dosage: DATE OF LAST DOSE PRIOR TO SAE: 30/AUG/2019.
     Route: 042
     Dates: start: 20190823
  4. TRASTUZUMAB. [Concomitant]
     Active Substance: TRASTUZUMAB
     Dosage: DATE OF LAST DOSE PRIOR TO SAE: 23/AUG/2019.
     Route: 041
     Dates: start: 20190823
  5. PERTUZUMAB. [Concomitant]
     Active Substance: PERTUZUMAB
     Dosage: DATE OF LAST DOSE PRIOR TO SAE: 23/AUG/2019.
     Route: 042
     Dates: start: 20190823
  6. ATEZOLIZUMAB. [Suspect]
     Active Substance: ATEZOLIZUMAB
     Indication: BREAST CANCER
     Dosage: DATE OF LAST DOSE PRIOR TO SAE: 05/JUL/2019
     Route: 041
     Dates: start: 20190614
  7. PACLITAXEL. [Concomitant]
     Active Substance: PACLITAXEL
     Dosage: DATE OF LAST DOSE PRIOR TO SAE: 30/AUG/2019.
     Route: 042
     Dates: start: 20190823

REACTIONS (2)
  - Autoimmune hypothyroidism [Not Recovered/Not Resolved]
  - Basedow^s disease [Recovered/Resolved]

NARRATIVE: CASE EVENT DATE: 20190725
